FAERS Safety Report 16483221 (Version 1)
Quarter: 2019Q2

REPORT INFORMATION
  Report Type: Spontaneous
  Country: GB (occurrence: GB)
  Receive Date: 20190627
  Receipt Date: 20190627
  Transmission Date: 20190711
  Serious: Yes (Other)
  Sender: FDA-Public Use
  Company Number: GB-PFIZER INC-2019268279

PATIENT
  Age: 60 Year
  Sex: Female
  Weight: 102 kg

DRUGS (1)
  1. PACLITAXEL. [Suspect]
     Active Substance: PACLITAXEL
     Dosage: 180 (DOSE UNIT AND FREQUENCY UNKNOWN)
     Route: 042
     Dates: start: 20190517, end: 20190517

REACTIONS (2)
  - Dyspnoea [Recovered/Resolved]
  - Hot flush [Recovered/Resolved]

NARRATIVE: CASE EVENT DATE: 20190517
